FAERS Safety Report 15328350 (Version 1)
Quarter: 2018Q3

REPORT INFORMATION
  Report Type: Report from Study
  Country: None (occurrence: CA)
  Receive Date: 20180829
  Receipt Date: 20180829
  Transmission Date: 20181010
  Serious: Yes (Other)
  Sender: FDA-Public Use
  Company Number: CA-ABBVIE-18S-028-2465925-00

PATIENT
  Sex: Male

DRUGS (1)
  1. LUPRON DEPOT [Suspect]
     Active Substance: LEUPROLIDE ACETATE
     Indication: PROSTATE CANCER
     Route: 030
     Dates: start: 20140103

REACTIONS (4)
  - Parathyroid disorder [Unknown]
  - Dizziness [Unknown]
  - Eye infection [Unknown]
  - Headache [Unknown]

NARRATIVE: CASE EVENT DATE: 2018
